FAERS Safety Report 5355079-X (Version None)
Quarter: 2007Q2

REPORT INFORMATION
  Report Type: 
  Country: None (occurrence: None)
  Receive Date: 20070613
  Receipt Date: 20070531
  Transmission Date: 20071010
  Serious: Yes (Hospitalization)
  Sender: FDA-Public Use
  Company Number: PHBS2007TR08898

PATIENT
  Age: 62 Year
  Sex: Male
  Weight: 64 kg

DRUGS (5)
  1. GLEEVEC [Suspect]
     Indication: CHRONIC MYELOID LEUKAEMIA
     Dosage: 600 MG, QD
     Route: 048
     Dates: start: 20070216, end: 20070501
  2. GLEEVEC [Suspect]
     Dosage: 600 MG, QD
     Route: 048
  3. STARLIX [Concomitant]
     Indication: DIABETES MELLITUS
     Dosage: 240 MG/D
     Route: 048
  4. DIOVAN [Concomitant]
     Indication: HYPERTENSION
     Dosage: 80 MG/D
     Route: 048
  5. LESCOL [Concomitant]
     Indication: HYPERLIPIDAEMIA
     Dosage: 80 MG/D
     Route: 048

REACTIONS (3)
  - DERMATITIS ALLERGIC [None]
  - PITYRIASIS ROSEA [None]
  - SKIN LESION [None]
